FAERS Safety Report 10657847 (Version 2)
Quarter: 2014Q4

REPORT INFORMATION
  Report Type: Spontaneous
  Country: US (occurrence: US)
  Receive Date: 20141217
  Receipt Date: 20141217
  Transmission Date: 20150529
  Serious: Yes (Life-Threatening, Hospitalization, Disabling, Other)
  Sender: FDA-Public Use
  Company Number: US-GLAXOSMITHKLINE-A1055593A

PATIENT

DRUGS (11)
  1. SPIRONOLACTONE. [Concomitant]
     Active Substance: SPIRONOLACTONE
  2. COMPAZINE [Concomitant]
     Active Substance: PROCHLORPERAZINE MALEATE
  3. CALCIUM PLUS D [Concomitant]
     Active Substance: CALCIUM\VITAMIN D
  4. VOTRIENT [Suspect]
     Active Substance: PAZOPANIB HYDROCHLORIDE
     Indication: RENAL CANCER
     Dosage: 800 MG DAILY
     Route: 048
     Dates: start: 20131206
  5. LORAZEPAM. [Concomitant]
     Active Substance: LORAZEPAM
  6. XGEVA [Concomitant]
     Active Substance: DENOSUMAB
  7. FUROSEMIDE. [Concomitant]
     Active Substance: FUROSEMIDE
  8. STOOL SOFTENER [Concomitant]
     Active Substance: DOCUSATE CALCIUM
  9. LAXATIVE [Concomitant]
     Active Substance: UNSPECIFIED INGREDIENT
  10. MORPHINE [Concomitant]
     Active Substance: MORPHINE
  11. MIRALAX [Concomitant]
     Active Substance: POLYETHYLENE GLYCOL 3350

REACTIONS (1)
  - Catheter site infection [Unknown]
